FAERS Safety Report 6589593-6 (Version None)
Quarter: 2010Q1

REPORT INFORMATION
  Report Type: 
  Country: None (occurrence: None)
  Receive Date: 20100212
  Receipt Date: 20100127
  Transmission Date: 20100710
  Serious: Yes (Other)
  Sender: FDA-Public Use
  Company Number: 230649J10USA

PATIENT
  Age: 54 Year
  Sex: Female
  Weight: 91 kg

DRUGS (2)
  1. REBIF [Suspect]
     Indication: MULTIPLE SCLEROSIS
     Dosage: 44 MCG, 3 IN 1 WEEKS, SUBCUTANEOUS
     Route: 058
     Dates: start: 20090323
  2. VITAMIN B12 [Concomitant]

REACTIONS (4)
  - CAROTID ARTERY OCCLUSION [None]
  - FATIGUE [None]
  - THERAPEUTIC PRODUCT INEFFECTIVE [None]
  - THYROID NEOPLASM [None]
